FAERS Safety Report 8804272 (Version 1)
Quarter: 2012Q4

REPORT INFORMATION
  Report Type: 
  Country: CA (occurrence: CA)
  Receive Date: 20120924
  Receipt Date: 20120924
  Transmission Date: 20130627
  Serious: Yes (Hospitalization, Other)
  Sender: FDA-Public Use
  Company Number: CA-JNJFOC-20120906519

PATIENT
  Age: 16 Year
  Sex: Male

DRUGS (2)
  1. REMICADE [Suspect]
     Indication: COLITIS ULCERATIVE
     Route: 042
  2. HEPARIN [Concomitant]
     Route: 065

REACTIONS (2)
  - Cerebral venous thrombosis [Unknown]
  - Deep vein thrombosis [Unknown]
